FAERS Safety Report 9837779 (Version 1)
Quarter: 2013Q4

REPORT INFORMATION
  Report Type: Spontaneous
  Country: US (occurrence: None)
  Receive Date: 20131205
  Receipt Date: 20131205
  Transmission Date: 20140711
  Serious: Yes (Other)
  Sender: FDA-Public Use
  Company Number: 163-POMAL-13102174

PATIENT
  Age: 81 Year
  Sex: Male

DRUGS (15)
  1. POMALYST (POMALIDOMIDE) (4 MILLIGRAM, CAPSULES) [Suspect]
     Indication: PLASMA CELL MYELOMA
     Dosage: 4 MG, 21 IN 28 D, PO
     Route: 048
     Dates: start: 20130905
  2. AMLODIPINE (AMLODIPINE) [Concomitant]
  3. KLOR-CON (POTASSIUM CHLORIDE) [Concomitant]
  4. BYSTOLIC (NEBIVOLOL HYDROCHLORIDE) [Concomitant]
  5. TERAZOSIN (TERAZOSIN) (TERAZOSIN) [Concomitant]
  6. PRADAXA (DABIGATRAN ETEXILATE MESILATE) [Concomitant]
  7. ALLOPURINOL (ALLOPURINOL) [Concomitant]
  8. RESTORIL (TEMAZEPAM) [Concomitant]
  9. OMEPRAZOLE (OMEPRAZOLE) [Concomitant]
  10. CHLORTHALIDONE (CHLORTALIDONE) [Concomitant]
  11. VITAMIN C (ASCORBIC ACID) [Concomitant]
  12. VITAMIN D (ERGOCALCIFEROL) [Concomitant]
  13. VITAMIN B12 (CYANOCOBALAMIN) [Concomitant]
  14. FOLIC ACID (FOLIC ACID) [Concomitant]
  15. PRESERVATION AREDS 2 (VITEYES) [Concomitant]

REACTIONS (1)
  - Ear infection [None]
